FAERS Safety Report 13815392 (Version 1)
Quarter: 2017Q3

REPORT INFORMATION
  Report Type: Spontaneous
  Country: US (occurrence: US)
  Receive Date: 20170731
  Receipt Date: 20170731
  Transmission Date: 20171127
  Serious: Yes (Life-Threatening, Hospitalization, Other)
  Sender: FDA-Public Use
  Company Number: US-EMD SERONO-7027539

PATIENT
  Age: 54 Year
  Sex: Female
  Weight: 86 kg

DRUGS (12)
  1. PREDNISONE. [Suspect]
     Active Substance: PREDNISONE
     Indication: PREMEDICATION
  2. KLONOPIN [Concomitant]
     Active Substance: CLONAZEPAM
     Indication: ANXIETY
     Dates: start: 2006
  3. REBIF [Suspect]
     Active Substance: INTERFERON BETA-1A
     Route: 058
     Dates: start: 20101122
  4. IBUPROFEN. [Concomitant]
     Active Substance: IBUPROFEN
     Indication: PREMEDICATION
  5. KLONOPIN [Concomitant]
     Active Substance: CLONAZEPAM
     Indication: DEPRESSION
  6. LEXAPRO [Concomitant]
     Active Substance: ESCITALOPRAM OXALATE
     Indication: ANXIETY
     Dates: start: 2006
  7. REBIF [Suspect]
     Active Substance: INTERFERON BETA-1A
     Route: 058
  8. LEXAPRO [Concomitant]
     Active Substance: ESCITALOPRAM OXALATE
     Indication: DEPRESSION
  9. ATENOLOL/ATENOLOL [Concomitant]
     Indication: HEART RATE IRREGULAR
  10. VITAMIN D WITH CALCIUM [Concomitant]
     Active Substance: CALCIUM\CHOLECALCIFEROL
     Indication: ARTHRALGIA
     Dates: start: 2008
  11. REBIF [Suspect]
     Active Substance: INTERFERON BETA-1A
     Indication: MULTIPLE SCLEROSIS
     Route: 058
     Dates: start: 20060705, end: 20101110
  12. ATENOLOL/ATENOLOL [Concomitant]
     Indication: PALPITATIONS

REACTIONS (36)
  - High density lipoprotein decreased [Not Recovered/Not Resolved]
  - Vitamin B12 increased [Recovered/Resolved]
  - Injection site erythema [Not Recovered/Not Resolved]
  - Injection site pruritus [Not Recovered/Not Resolved]
  - Back injury [Not Recovered/Not Resolved]
  - Abdominal hernia [Unknown]
  - Anorectal discomfort [Not Recovered/Not Resolved]
  - Vitamin D decreased [Unknown]
  - Fatigue [Unknown]
  - Urinary tract infection [Recovered/Resolved]
  - Appendicitis perforated [Recovered/Resolved]
  - Injection site bruising [Unknown]
  - Injection site pain [Not Recovered/Not Resolved]
  - Scar [Recovered/Resolved]
  - Oedema peripheral [Not Recovered/Not Resolved]
  - Haematochezia [Unknown]
  - Viral infection [Recovered/Resolved]
  - Vitamin B12 decreased [Unknown]
  - Influenza like illness [Recovering/Resolving]
  - Injection site swelling [Unknown]
  - Postoperative wound infection [Recovered/Resolved]
  - Peritonitis [Recovered/Resolved]
  - Sciatica [Not Recovered/Not Resolved]
  - Joint swelling [Not Recovered/Not Resolved]
  - Blood cholesterol increased [Unknown]
  - Blood triglycerides increased [Unknown]
  - Yellow skin [Recovered/Resolved]
  - Procedural pain [Not Recovered/Not Resolved]
  - Pain [Not Recovered/Not Resolved]
  - Fall [Unknown]
  - Diarrhoea [Recovered/Resolved]
  - Weight decreased [Unknown]
  - Retching [Not Recovered/Not Resolved]
  - Malaise [Recovered/Resolved]
  - Hypothyroidism [Not Recovered/Not Resolved]
  - Dermatitis allergic [Unknown]

NARRATIVE: CASE EVENT DATE: 2010
